FAERS Safety Report 5788114-5 (Version None)
Quarter: 2008Q2

REPORT INFORMATION
  Report Type: 
  Country: None (occurrence: None)
  Receive Date: 20080625
  Receipt Date: 20080620
  Transmission Date: 20081010
  Serious: Yes (Life-Threatening)
  Sender: FDA-Public Use
  Company Number: ES-BOEHRINGER INGELHEIM GMBH, GERMANY-2008-ES-00592ES

PATIENT
  Age: 51 Year
  Sex: Male

DRUGS (5)
  1. MIRAPEXIN [Suspect]
     Indication: HEPATIC CIRRHOSIS
     Route: 048
     Dates: start: 20080206, end: 20080212
  2. ALDACTONE [Suspect]
     Indication: HEPATIC CIRRHOSIS
     Route: 048
     Dates: start: 20080206, end: 20080213
  3. OMEPRAZOLE [Concomitant]
     Route: 048
     Dates: start: 20080118
  4. DACORTIN [Concomitant]
     Route: 048
     Dates: start: 20080206
  5. URSOBILANE [Concomitant]
     Route: 048
     Dates: start: 20080118

REACTIONS (2)
  - CONSTIPATION [None]
  - HEPATIC ENCEPHALOPATHY [None]
